FAERS Safety Report 5964606-0 (Version None)
Quarter: 2008Q4

REPORT INFORMATION
  Report Type: 
  Country: None (occurrence: None)
  Receive Date: 20081124
  Receipt Date: 20081124
  Transmission Date: 20090506
  Serious: No
  Sender: FDA-Public Use
  Company Number: None

PATIENT
  Age: 48 Year
  Sex: Female
  Weight: 90.7194 kg

DRUGS (1)
  1. ZICAM COLD REMEDY NASAL GELZ ZINCUMGLUCONICUM 2X ZICAM LLC A SUBSIDIAR [Suspect]
     Indication: RHINOVIRUS INFECTION
     Dosage: 1 PUMP EVERY 4 HOURS NASAL
     Route: 045
     Dates: start: 20081122, end: 20081122

REACTIONS (11)
  - BURNING SENSATION [None]
  - CHEMICAL INJURY [None]
  - EPISTAXIS [None]
  - EYE PAIN [None]
  - FEELING ABNORMAL [None]
  - NASAL DISCOMFORT [None]
  - NERVOUS SYSTEM DISORDER [None]
  - PAIN [None]
  - PAROSMIA [None]
  - PRODUCT QUALITY ISSUE [None]
  - SINUS HEADACHE [None]
